FAERS Safety Report 7588461-0 (Version None)
Quarter: 2011Q2

REPORT INFORMATION
  Report Type: 
  Country: None (occurrence: None)
  Receive Date: 20110627
  Receipt Date: 20110623
  Transmission Date: 20111010
  Serious: Yes (Hospitalization, Other)
  Sender: FDA-Public Use
  Company Number: ZYD-11-AE-137

PATIENT
  Age: 82 Year
  Sex: Female

DRUGS (1)
  1. CARVEDILOL [Suspect]
     Indication: HYPERTENSION
     Dosage: 1 TABLET
     Dates: start: 20110622, end: 20110622

REACTIONS (5)
  - DYSPHONIA [None]
  - UNEVALUABLE EVENT [None]
  - HEADACHE [None]
  - BLOOD PRESSURE INCREASED [None]
  - CONFUSIONAL STATE [None]
